FAERS Safety Report 9221566 (Version 2)
Quarter: 2013Q4

REPORT INFORMATION
  Report Type: Spontaneous
  Country: GB (occurrence: None)
  Receive Date: 20130408
  Receipt Date: 20131009
  Transmission Date: 20140711
  Serious: Yes (Other)
  Sender: FDA-Public Use
  Company Number: AUR-APL-2013-02946

PATIENT
  Age: 62 Year
  Sex: Male
  Weight: 127 kg

DRUGS (14)
  1. GABAPENTIN (GABAPENTIN) [Suspect]
     Indication: ARTHRALGIA
     Route: 048
     Dates: start: 20121112, end: 20121220
  2. BENDROFLUMETHIAZIDE (BENDROFLUMETHIAZIDE) [Concomitant]
  3. DALTEPARIN (DALTEPARIN) [Concomitant]
  4. DIHYDROCODEINE (DIHYDROCODEINE) [Concomitant]
  5. DOCUSATE SODIUM (DOCUSATE SODIUM) [Concomitant]
  6. DOSULEPIN (DOSULEPIN) [Concomitant]
  7. LANSOPRAZOLE (LANSOPRAZOLE) [Concomitant]
  8. LISINOPRIL (LISINOPRIL) [Concomitant]
  9. NIFEDIPINE (NIFEDIPINE) [Concomitant]
  10. ORAMORPH (MORPHINE SULFATE) [Concomitant]
  11. PARACETAMOL (PARACETAMOL) [Concomitant]
  12. QUININE (QUINE) [Concomitant]
  13. SIMVASTATIN (SIMVASTATIN) [Concomitant]
  14. TEMAZEPAM (TEMAZEPAM) [Concomitant]

REACTIONS (4)
  - Suicidal ideation [None]
  - Paralysis [None]
  - Respiratory disorder [None]
  - Diaphragmatic paralysis [None]
